FAERS Safety Report 25320981 (Version 1)
Quarter: 2025Q2

REPORT INFORMATION
  Report Type: Spontaneous
  Country: US (occurrence: US)
  Receive Date: 20250515
  Receipt Date: 20250515
  Transmission Date: 20250717
  Serious: No
  Sender: SANOFI AVENTIS
  Company Number: US-SA-2025SA138021

PATIENT
  Age: 54 Year
  Sex: Female

DRUGS (2)
  1. KEVZARA [Suspect]
     Active Substance: SARILUMAB
     Indication: Rheumatoid arthritis
     Dosage: 200 MG, QOW
     Route: 058
     Dates: start: 202305
  2. ACTEMRA ACTPEN [Concomitant]
     Active Substance: TOCILIZUMAB

REACTIONS (2)
  - Arthralgia [Not Recovered/Not Resolved]
  - Swollen joint count increased [Not Recovered/Not Resolved]

NARRATIVE: CASE EVENT DATE: 20250401
